FAERS Safety Report 21189923 (Version 1)
Quarter: 2022Q3

REPORT INFORMATION
  Report Type: Spontaneous
  Country: US (occurrence: None)
  Receive Date: 20220808
  Receipt Date: 20220808
  Transmission Date: 20221026
  Serious: Yes (Other)
  Sender: FDA-Public Use
  Company Number: None

PATIENT
  Age: 63 Year
  Sex: Female
  Weight: 58.5 kg

DRUGS (9)
  1. QULIPTA [Suspect]
     Active Substance: ATOGEPANT
     Indication: Migraine
     Dosage: OTHER QUANTITY : 1 TABLET(S);?FREQUENCY : DAILY;?
     Route: 048
     Dates: start: 20220729, end: 20220807
  2. NURTEC ODT [Concomitant]
     Active Substance: RIMEGEPANT SULFATE
  3. PANTOPRAZOLE [Concomitant]
     Active Substance: PANTOPRAZOLE
  4. AMBIEN [Concomitant]
     Active Substance: ZOLPIDEM TARTRATE
  5. ASPIRIN [Concomitant]
     Active Substance: ASPIRIN
  6. MODAFINIL [Concomitant]
     Active Substance: MODAFINIL
  7. MONTELUKAST SODIUM [Concomitant]
  8. CETIRIZINE [Concomitant]
     Active Substance: CETIRIZINE HYDROCHLORIDE
  9. TOPIRAMATE [Concomitant]
     Active Substance: TOPIRAMATE

REACTIONS (1)
  - Drug hypersensitivity [None]

NARRATIVE: CASE EVENT DATE: 20220729
